FAERS Safety Report 9838813 (Version 1)
Quarter: 2014Q1

REPORT INFORMATION
  Report Type: Spontaneous
  Country: US (occurrence: None)
  Receive Date: 20140117
  Receipt Date: 20140117
  Transmission Date: 20141002
  Serious: No
  Sender: FDA-Public Use
  Company Number: None

PATIENT
  Age: 25 Year
  Sex: Male
  Weight: 56.7 kg

DRUGS (3)
  1. OCELLA [Suspect]
     Indication: CONTRACEPTION
     Dosage: ONE  DAILY  ORAL?PT THINKS ABOUT 4-5 YR AGO
     Route: 048
  2. OCELLA [Suspect]
     Indication: ACNE
     Dosage: ONE  DAILY  ORAL?PT THINKS ABOUT 4-5 YR AGO
     Route: 048
  3. YAZ [Concomitant]

REACTIONS (4)
  - Nausea [None]
  - Emotional disorder [None]
  - Hormone level abnormal [None]
  - Product substitution issue [None]
